FAERS Safety Report 23148187 (Version 2)
Quarter: 2025Q1

REPORT INFORMATION
  Report Type: Spontaneous
  Country: FR (occurrence: FR)
  Receive Date: 20231106
  Receipt Date: 20250213
  Transmission Date: 20250409
  Serious: Yes (Hospitalization, Other)
  Sender: UCB
  Company Number: None

PATIENT
  Age: 15 Year
  Sex: Female

DRUGS (21)
  1. KEPPRA [Suspect]
     Active Substance: LEVETIRACETAM
     Indication: Product used for unknown indication
     Dates: start: 2021
  2. KEPPRA [Suspect]
     Active Substance: LEVETIRACETAM
     Dosage: 500 MG IN THE MORNING AND IN THE EVENING AND IN THE EVENING
     Dates: start: 2021
  3. KEPPRA [Suspect]
     Active Substance: LEVETIRACETAM
  4. KEPPRA [Suspect]
     Active Substance: LEVETIRACETAM
     Dosage: 750 MG MORNING AND EVENING
     Dates: start: 2021
  5. KEPPRA [Suspect]
     Active Substance: LEVETIRACETAM
     Dosage: 2 GRAM, PER DAY
     Dates: start: 2021
  6. KEPPRA [Suspect]
     Active Substance: LEVETIRACETAM
     Dosage: 250 MG IN THE MORNING AND IN THE EVENING
     Dates: start: 2021
  7. KEPPRA [Suspect]
     Active Substance: LEVETIRACETAM
     Dates: start: 2021
  8. LAMICTAL [Suspect]
     Active Substance: LAMOTRIGINE
     Indication: Product used for unknown indication
     Dosage: 100 MG PER DAY
  9. LAMICTAL [Suspect]
     Active Substance: LAMOTRIGINE
  10. LAMICTAL [Suspect]
     Active Substance: LAMOTRIGINE
     Dosage: 100 MILLIGRAM, MORNING AND EVENING
  11. LAMICTAL [Suspect]
     Active Substance: LAMOTRIGINE
     Dosage: 75 MG IN THE MORNING AND IN THE EVENING
  12. LAMICTAL [Suspect]
     Active Substance: LAMOTRIGINE
     Dosage: 50 MG PER DAY
  13. LAMICTAL [Suspect]
     Active Substance: LAMOTRIGINE
     Dosage: 25 MILLIGRAM, IN THE EVENING
     Dates: start: 20210129
  14. LAMICTAL [Suspect]
     Active Substance: LAMOTRIGINE
     Dosage: 75 MG PER DAY
  15. LAMICTAL [Suspect]
     Active Substance: LAMOTRIGINE
     Dosage: 100 MG IN THE MORNING AND IN THE EVENING
  16. LAMICTAL [Suspect]
     Active Substance: LAMOTRIGINE
  17. LAMICTAL [Suspect]
     Active Substance: LAMOTRIGINE
     Dates: start: 20211026, end: 2021
  18. ZONEGRAN [Suspect]
     Active Substance: ZONISAMIDE
     Indication: Product used for unknown indication
     Dosage: 100 MG IN THE MORNING AND IN THE EVENING
  19. ZONEGRAN [Suspect]
     Active Substance: ZONISAMIDE
     Dosage: 50MG IN THE MORNING AND IN THE EVENING
     Dates: start: 20211029
  20. GARDASIL 9 [Suspect]
     Active Substance: HUMAN PAPILLOMAVIRUS TYPE 11 L1 CAPSID PROTEIN ANTIGEN\HUMAN PAPILLOMAVIRUS TYPE 16 L1 CAPSID PROTEI
     Indication: Prophylaxis
     Route: 058
     Dates: start: 20200430
  21. GARDASIL 9 [Suspect]
     Active Substance: HUMAN PAPILLOMAVIRUS TYPE 11 L1 CAPSID PROTEIN ANTIGEN\HUMAN PAPILLOMAVIRUS TYPE 16 L1 CAPSID PROTEI
     Route: 058
     Dates: start: 20201109

REACTIONS (27)
  - Idiopathic generalised epilepsy [Unknown]
  - Generalised tonic-clonic seizure [Unknown]
  - Epilepsy [Not Recovered/Not Resolved]
  - Seizure [Recovered/Resolved]
  - Petit mal epilepsy [Unknown]
  - Choking [Unknown]
  - Loss of consciousness [Recovered/Resolved]
  - Drug intolerance [Unknown]
  - Weight increased [Unknown]
  - Memory impairment [Unknown]
  - Psychomotor skills impaired [Unknown]
  - Disturbance in attention [Unknown]
  - Irritability [Unknown]
  - Anhedonia [Unknown]
  - Sleep disorder [Unknown]
  - Fall [Unknown]
  - Fatigue [Unknown]
  - Asthenia [Unknown]
  - Alopecia [Unknown]
  - Migraine [Unknown]
  - Aggression [Unknown]
  - Skin striae [Unknown]
  - Somnolence [Unknown]
  - Affective disorder [Unknown]
  - Anxiety [Unknown]
  - Ill-defined disorder [Unknown]
  - Drug ineffective [Unknown]

NARRATIVE: CASE EVENT DATE: 20201110
